FAERS Safety Report 6424230-2 (Version None)
Quarter: 2009Q4

REPORT INFORMATION
  Report Type: 
  Country: None (occurrence: None)
  Receive Date: 20091102
  Receipt Date: 20091021
  Transmission Date: 20100525
  Serious: Yes (Other)
  Sender: FDA-Public Use
  Company Number: PL-PFIZER INC-2009286286

PATIENT
  Age: 14 Year
  Sex: Male

DRUGS (1)
  1. ZELDOX [Suspect]
     Indication: ACUTE PSYCHOSIS
     Dosage: 10 MG, SINGLE
     Route: 030

REACTIONS (1)
  - BLOOD CREATINE PHOSPHOKINASE INCREASED [None]
